FAERS Safety Report 12267312 (Version 1)
Quarter: 2016Q2

REPORT INFORMATION
  Report Type: Spontaneous
  Country: BR (occurrence: BR)
  Receive Date: 20160414
  Receipt Date: 20160414
  Transmission Date: 20160815
  Serious: Yes (Other)
  Sender: FDA-Public Use
  Company Number: ALCN2016BR002423

PATIENT
  Sex: Male

DRUGS (6)
  1. COMBIGAN [Concomitant]
     Active Substance: BRIMONIDINE TARTRATE\TIMOLOL MALEATE
     Indication: PRODUCT USED FOR UNKNOWN INDICATION
  2. ALPHAGAN P [Suspect]
     Active Substance: BRIMONIDINE TARTRATE
     Indication: PRODUCT USED FOR UNKNOWN INDICATION
  3. DIAMOX SODIUM [Concomitant]
     Indication: GLAUCOMA
  4. LUMIGAN [Concomitant]
     Active Substance: BIMATOPROST
     Indication: PRODUCT USED FOR UNKNOWN INDICATION
  5. TIMOLOL FALCON [Suspect]
     Active Substance: TIMOLOL
     Indication: PRODUCT USED FOR UNKNOWN INDICATION
     Route: 047
  6. TRUSOPT [Suspect]
     Active Substance: DORZOLAMIDE HYDROCHLORIDE
     Indication: PRODUCT USED FOR UNKNOWN INDICATION

REACTIONS (12)
  - Corneal lesion [Unknown]
  - Ocular discomfort [Unknown]
  - Asthma [Unknown]
  - Foreign body sensation in eyes [Unknown]
  - Insomnia [Unknown]
  - Eye pain [Unknown]
  - Vision blurred [Unknown]
  - Cataract [Unknown]
  - Weight decreased [Unknown]
  - Herpes ophthalmic [Unknown]
  - Influenza [Unknown]
  - Drug ineffective [Unknown]
